FAERS Safety Report 10182941 (Version 2)
Quarter: 2017Q4

REPORT INFORMATION
  Report Type: Spontaneous
  Country: US (occurrence: US)
  Receive Date: 20140520
  Receipt Date: 20171127
  Transmission Date: 20180320
  Serious: Yes (Hospitalization)
  Sender: FDA-Public Use
  Company Number: US-PFIZER INC-2014136318

PATIENT
  Age: 61 Year
  Sex: Male
  Weight: 95.25 kg

DRUGS (1)
  1. VIAGRA [Suspect]
     Active Substance: SILDENAFIL CITRATE
     Indication: ERECTILE DYSFUNCTION
     Dosage: 100 MG, AS NEEDED (ONCE DAILY)
     Dates: start: 2001

REACTIONS (2)
  - Condition aggravated [Recovered/Resolved]
  - Diabetes mellitus [Recovered/Resolved]
